FAERS Safety Report 10969999 (Version 1)
Quarter: 2015Q1

REPORT INFORMATION
  Report Type: Spontaneous
  Country: US (occurrence: None)
  Receive Date: 20150226
  Receipt Date: 20150226
  Transmission Date: 20150721
  Serious: No
  Sender: FDA-Public Use
  Company Number: TPA2009A02191

PATIENT
  Age: 38 Year
  Sex: Female
  Weight: 109 kg

DRUGS (5)
  1. ULORIC [Suspect]
     Active Substance: FEBUXOSTAT
     Indication: NEPHROLITHIASIS
     Route: 048
     Dates: start: 200904, end: 20090625
  2. LEXAPRO [Concomitant]
     Active Substance: ESCITALOPRAM OXALATE
  3. PEPCID [Concomitant]
     Active Substance: FAMOTIDINE
  4. ULORIC [Suspect]
     Active Substance: FEBUXOSTAT
     Indication: GOUT
     Route: 048
     Dates: start: 200904, end: 20090625
  5. DIOVAN [Concomitant]
     Active Substance: VALSARTAN

REACTIONS (3)
  - Blood uric acid increased [None]
  - Gout [None]
  - White blood cell count increased [None]

NARRATIVE: CASE EVENT DATE: 20090730
